FAERS Safety Report 4526545-1 (Version None)
Quarter: 2004Q4

REPORT INFORMATION
  Report Type: 
  Country: None (occurrence: None)
  Receive Date: 20041210
  Receipt Date: 20041123
  Transmission Date: 20050328
  Serious: Yes (Other)
  Sender: FDA-Public Use
  Company Number: WAES 0410USA50161

PATIENT
  Age: 74 Year
  Sex: Male
  Weight: 68.0396 kg

DRUGS (20)
  1. VIOXX [Suspect]
     Indication: NEOPLASM PROPHYLAXIS
     Dosage: 25 MG/DAILY/PO
     Route: 048
     Dates: start: 20040908, end: 20041001
  2. ALBUTEROL [Suspect]
     Indication: CHRONIC OBSTRUCTIVE AIRWAYS DISEASE
     Dates: start: 20020701
  3. ASCORBIC ACID [Concomitant]
  4. CALCIUM [Concomitant]
  5. CHONDROITIN SULFATE SODIUM [Concomitant]
  6. CLARITHROMYCIN [Concomitant]
  7. FLUNISOLIDE [Concomitant]
  8. GLUCOSAMINE HYDROCHLORIDE [Concomitant]
  9. GUAIFENESIN (+) PHENYLEPHRINE HY [Concomitant]
  10. HYDROCHLOROTHIAZIDE (+) TRIAMTER [Concomitant]
  11. HYOSCYAMINE [Concomitant]
  12. IPATROPIUM BROMIDE [Concomitant]
  13. LISINOPRIL [Concomitant]
  14. LOVASTATIN [Concomitant]
  15. PREDNISONE [Concomitant]
  16. QUININE SULFATE [Concomitant]
  17. SERTRALINE HYDROCHLORIDE [Concomitant]
  18. SILDENAFIL CITRATE [Concomitant]
  19. VITAMIN E [Concomitant]
  20. MULTIVITAMIN [Concomitant]

REACTIONS (1)
  - LABORATORY TEST INTERFERENCE [None]
